FAERS Safety Report 5736715-2 (Version None)
Quarter: 2008Q2

REPORT INFORMATION
  Report Type: 
  Country: None (occurrence: None)
  Receive Date: 20080513
  Receipt Date: 20080507
  Transmission Date: 20081010
  Serious: Yes (Hospitalization, Other)
  Sender: FDA-Public Use
  Company Number: PHBS2008ES04505

PATIENT
  Age: 21 Year
  Sex: Female

DRUGS (5)
  1. BUPIVACAINE [Concomitant]
  2. FENTANYL CITRATE [Concomitant]
  3. RITODRINE HYDROCHLORIDE [Concomitant]
     Dosage: 37.5 MG/DAY
  4. OXYTOCIN [Suspect]
     Dosage: 20 IU, UNK
  5. GLYCERYL TRINITRATE [Concomitant]
     Dosage: 0.8 MG/DAY
     Route: 060

REACTIONS (11)
  - ACUTE CORONARY SYNDROME [None]
  - ARTERIOSPASM CORONARY [None]
  - BLOOD CREATINE PHOSPHOKINASE INCREASED [None]
  - BLOOD PRESSURE DECREASED [None]
  - CHEST PAIN [None]
  - ELECTROCARDIOGRAM ST SEGMENT DEPRESSION [None]
  - ELECTROCARDIOGRAM ST SEGMENT ELEVATION [None]
  - HEART RATE INCREASED [None]
  - NAUSEA [None]
  - TROPONIN T INCREASED [None]
  - VOMITING [None]
